FAERS Safety Report 20102493 (Version 2)
Quarter: 2022Q1

REPORT INFORMATION
  Report Type: Spontaneous
  Country: AU (occurrence: AU)
  Receive Date: 20211123
  Receipt Date: 20220315
  Transmission Date: 20220424
  Serious: Yes (Hospitalization)
  Sender: FDA-Public Use
  Company Number: AU-VERTEX PHARMACEUTICALS-2021-018295

PATIENT
  Sex: Female

DRUGS (1)
  1. TRIKAFTA [Suspect]
     Active Substance: ELEXACAFTOR\IVACAFTOR\TEZACAFTOR
     Indication: Cystic fibrosis
     Dosage: STANDARD, BID
     Route: 048
     Dates: start: 20200303, end: 20200317

REACTIONS (1)
  - Lung transplant [Not Recovered/Not Resolved]

NARRATIVE: CASE EVENT DATE: 20200317
